FAERS Safety Report 4542446-7 (Version None)
Quarter: 2004Q4

REPORT INFORMATION
  Report Type: 
  Country: None (occurrence: None)
  Receive Date: 20041229
  Receipt Date: 20041109
  Transmission Date: 20050328
  Serious: Yes (Other)
  Sender: FDA-Public Use
  Company Number: 4319

PATIENT
  Age: 76 Year
  Sex: Male

DRUGS (3)
  1. NAPROXEN [Suspect]
     Indication: ARTHRALGIA
     Dosage: ONE TABLET PO BID
  2. HYTRIN [Concomitant]
  3. PROSCAR [Concomitant]

REACTIONS (1)
  - ADVERSE DRUG REACTION [None]
